FAERS Safety Report 24554894 (Version 3)
Quarter: 2025Q3

REPORT INFORMATION
  Report Type: Report from Study
  Country: US (occurrence: US)
  Receive Date: 20241028
  Receipt Date: 20250803
  Transmission Date: 20251020
  Serious: Yes (Other)
  Sender: ALEXION PHARMACEUTICALS
  Company Number: US-AstraZeneca-CH-00695284AM

PATIENT
  Age: 64 Year
  Sex: Male

DRUGS (2)
  1. STRENSIQ [Suspect]
     Active Substance: ASFOTASE ALFA
     Indication: Hypophosphatasia
     Route: 065
  2. VITAMIN B6 [Concomitant]
     Active Substance: PYRIDOXINE HYDROCHLORIDE
     Dosage: 1000 MILLIGRAM, QD
     Route: 065

REACTIONS (9)
  - Blood glucose increased [Unknown]
  - Injection site discolouration [Recovering/Resolving]
  - Injection site swelling [Recovering/Resolving]
  - Product temperature excursion issue [Unknown]
  - Decreased insulin requirement [Unknown]
  - Injection site atrophy [Recovering/Resolving]
  - Sensory loss [Unknown]
  - Blood sodium decreased [Unknown]
  - Glycosylated haemoglobin increased [Unknown]

NARRATIVE: CASE EVENT DATE: 20241010
